FAERS Safety Report 7764484-3 (Version None)
Quarter: 2011Q3

REPORT INFORMATION
  Report Type: 
  Country: None (occurrence: None)
  Receive Date: 20110921
  Receipt Date: 20110914
  Transmission Date: 20111222
  Serious: Yes (Life-Threatening, Hospitalization)
  Sender: FDA-Public Use
  Company Number: EG-SANOFI-AVENTIS-2011SA060078

PATIENT
  Age: 59 Year
  Sex: Female

DRUGS (2)
  1. DIAMICRON [Concomitant]
     Indication: DIABETES MELLITUS
     Route: 048
  2. LANTUS [Suspect]
     Dosage: DOSE:30 UNIT(S)
     Route: 058
     Dates: start: 20100803, end: 20110614

REACTIONS (1)
  - DIABETIC HYPERGLYCAEMIC COMA [None]
